FAERS Safety Report 7065414-2 (Version None)
Quarter: 2010Q4

REPORT INFORMATION
  Report Type: 
  Country: None (occurrence: None)
  Receive Date: 20101019
  Receipt Date: 20101006
  Transmission Date: 20110411
  Serious: No
  Sender: FDA-Public Use
  Company Number: 018949

PATIENT
  Age: 58 Year
  Sex: Female

DRUGS (4)
  1. KEPPRA [Suspect]
     Indication: CONVULSION
     Dosage: SEE IMAGE, ORAL
     Route: 048
     Dates: start: 20080101
  2. LISINOPRIL [Concomitant]
  3. METOPROLOL [Concomitant]
  4. CELLCEPT [Concomitant]

REACTIONS (3)
  - DISCOMFORT [None]
  - DIZZINESS [None]
  - NERVOUSNESS [None]
